FAERS Safety Report 23197411 (Version 1)
Quarter: 2023Q4

REPORT INFORMATION
  Report Type: Spontaneous
  Country: US (occurrence: None)
  Receive Date: 20231117
  Receipt Date: 20231117
  Transmission Date: 20240110
  Serious: Yes (Hospitalization)
  Sender: FDA-Public Use
  Company Number: None

PATIENT
  Age: 43 Year
  Sex: Female
  Weight: 62.9 kg

DRUGS (1)
  1. ZOLEDRONIC ACID [Suspect]
     Active Substance: ZOLEDRONIC ACID
     Indication: Osteoporosis
     Dosage: 5 MG ONE TIME INTRAVENOUS BOLUS?
     Route: 040
     Dates: start: 20231113, end: 20231113

REACTIONS (4)
  - Headache [None]
  - Altered state of consciousness [None]
  - Blood calcium decreased [None]
  - Postictal state [None]

NARRATIVE: CASE EVENT DATE: 20231113
